FAERS Safety Report 8082271-6 (Version None)
Quarter: 2012Q1

REPORT INFORMATION
  Report Type: 
  Country: None (occurrence: None)
  Receive Date: 20120127
  Receipt Date: 20110215
  Transmission Date: 20120608
  Serious: No
  Sender: FDA-Public Use
  Company Number: US-ABBOTT-11P-163-0705453-00

PATIENT
  Age: 25 Year
  Sex: Female

DRUGS (7)
  1. HUMIRA [Suspect]
     Indication: CROHN'S DISEASE
     Dates: start: 20101104, end: 20110201
  2. HUMIRA [Suspect]
     Dates: start: 20110217
  3. IMPLANON [Concomitant]
     Indication: CONTRACEPTION
     Dosage: IMPLANT
  4. LOVAZA [Concomitant]
     Indication: PRODUCT USED FOR UNKNOWN INDICATION
     Dosage: GUMMY VITAMIN DAILY
  5. QUESTRAN [Concomitant]
     Indication: CROHN'S DISEASE
     Dosage: 1 PACKAGE DAILY
  6. MULTI-VITAMIN [Concomitant]
     Indication: PRODUCT USED FOR UNKNOWN INDICATION
     Dosage: DAILY
  7. PROCTOFOAM [Concomitant]
     Indication: CROHN'S DISEASE
     Dosage: 1 APPLICATOR FULL DAILY

REACTIONS (1)
  - DRUG INEFFECTIVE [None]
